FAERS Safety Report 12098618 (Version 2)
Quarter: 2016Q1

REPORT INFORMATION
  Report Type: Spontaneous
  Country: US (occurrence: US)
  Receive Date: 20160222
  Receipt Date: 20160224
  Transmission Date: 20160526
  Serious: Yes (Hospitalization)
  Sender: FDA-Public Use
  Company Number: US-B.I. PHARMACEUTICALS,INC./RIDGEFIELD-2016-BI-10393BP

PATIENT
  Age: 58 Year
  Sex: Female
  Weight: 57 kg

DRUGS (1)
  1. COMBIVENT [Suspect]
     Active Substance: ALBUTEROL SULFATE\IPRATROPIUM BROMIDE
     Indication: CHRONIC OBSTRUCTIVE PULMONARY DISEASE
     Dosage: DOSE PER APPLICATION: 20MCG / 100MCG
     Route: 055
     Dates: start: 201512

REACTIONS (4)
  - Pneumonia [Recovered/Resolved]
  - Eye swelling [Not Recovered/Not Resolved]
  - Swollen tongue [Unknown]
  - Panic attack [Unknown]

NARRATIVE: CASE EVENT DATE: 201602
